FAERS Safety Report 17451064 (Version 2)
Quarter: 2020Q2

REPORT INFORMATION
  Report Type: Spontaneous
  Country: JP (occurrence: JP)
  Receive Date: 20200224
  Receipt Date: 20200626
  Transmission Date: 20200713
  Serious: Yes (Hospitalization)
  Sender: FDA-Public Use
  Company Number: JP-PFIZER INC-2020075811

PATIENT
  Age: 82 Year
  Sex: Male

DRUGS (1)
  1. ESTRACYT [Suspect]
     Active Substance: ESTRAMUSTINE
     Dosage: 626.8 MG
     Route: 048
     Dates: start: 20191211, end: 20200113

REACTIONS (4)
  - Pain [Recovered/Resolved]
  - Pyrexia [Unknown]
  - Mastitis [Recovered/Resolved]
  - Gynaecomastia [Recovered/Resolved]

NARRATIVE: CASE EVENT DATE: 20200113
